FAERS Safety Report 8678543 (Version 2)
Quarter: 2013Q2

REPORT INFORMATION
  Report Type: Spontaneous
  Country: US (occurrence: None)
  Receive Date: 20120406
  Receipt Date: 20120705
  Transmission Date: 20140414
  Serious: Yes (Death)
  Sender: FDA-Public Use
  Company Number: US-CYPR-2011-000101

PATIENT
  Age: 61 Year
  Sex: Male
  Weight: 196 kg

DRUGS (8)
  1. FISH [Concomitant]
  2. CYPHER STENT [Concomitant]
  3. CLOPIDOGREL [Suspect]
     Indication: ANTIPLATELET THERAPY
     Dosage: 75 MG QD ORAL
     Route: 048
     Dates: start: 20110129
  4. ASPIRIN [Suspect]
     Indication: CORONARY ARTERY DISEASE
     Route: 048
     Dates: start: 2005, end: 20100122
  5. ZOCOR [Concomitant]
  6. METOPROLOL SUCCINATE [Concomitant]
  7. LISINOPRIL [Concomitant]
  8. GLUCOSAMINE [Concomitant]

REACTIONS (1)
  - DEATH [None]
